FAERS Safety Report 8936438 (Version 1)
Quarter: 2012Q4

REPORT INFORMATION
  Report Type: 
  Country: US (occurrence: US)
  Receive Date: 20121130
  Receipt Date: 20121130
  Transmission Date: 20130627
  Serious: Yes (Other)
  Sender: FDA-Public Use
  Company Number: US-ELI_LILLY_AND_COMPANY-US201211006436

PATIENT
  Sex: Male

DRUGS (6)
  1. CYMBALTA [Suspect]
     Indication: DIABETIC NEUROPATHY
     Dosage: 120 mg, unknown
     Dates: start: 201111
  2. CYMBALTA [Suspect]
     Dosage: 30 mg, unknown
  3. ABILIFY [Concomitant]
     Indication: DEPRESSION
     Dosage: 5 mg, each evening
     Dates: start: 201011
  4. NEURONTIN [Concomitant]
     Indication: DIABETIC NEUROPATHY
     Dosage: 2400 mg, unknown
     Dates: start: 201011
  5. NEURONTIN [Concomitant]
     Dosage: 800 mg, UNK
  6. BENZODIAZEPINE RELATED DRUGS [Concomitant]

REACTIONS (3)
  - Hip arthroplasty [Recovering/Resolving]
  - Confusional state [Recovering/Resolving]
  - Hallucination [Recovering/Resolving]
